FAERS Safety Report 17030492 (Version 1)
Quarter: 2019Q4

REPORT INFORMATION
  Report Type: Spontaneous
  Country: US (occurrence: US)
  Receive Date: 20191114
  Receipt Date: 20191114
  Transmission Date: 20200122
  Serious: Yes (Other)
  Sender: FDA-Public Use
  Company Number: US-PFIZER INC-2019485025

PATIENT
  Sex: Female

DRUGS (1)
  1. SOLU-CORTEF [Suspect]
     Active Substance: HYDROCORTISONE SODIUM SUCCINATE
     Dosage: UNK
     Route: 030

REACTIONS (5)
  - Product administration error [Unknown]
  - Loss of consciousness [Unknown]
  - Product storage error [Unknown]
  - Incorrect route of product administration [Unknown]
  - Drug administered in wrong device [Unknown]
